FAERS Safety Report 6073984-6 (Version None)
Quarter: 2009Q1

REPORT INFORMATION
  Report Type: 
  Country: None (occurrence: None)
  Receive Date: 20090209
  Receipt Date: 20090209
  Transmission Date: 20090719
  Serious: Yes (Disabling)
  Sender: FDA-Public Use
  Company Number: None

PATIENT
  Age: 32 Year
  Sex: Female
  Weight: 71.2147 kg

DRUGS (1)
  1. METHYLDOPA [Suspect]
     Indication: PREHYPERTENSION
     Dosage: 250MG BID PO
     Route: 048
     Dates: start: 20090107, end: 20090131

REACTIONS (4)
  - BACK PAIN [None]
  - CHEST PAIN [None]
  - HYPOAESTHESIA [None]
  - MUSCULAR WEAKNESS [None]
